FAERS Safety Report 5900203-0 (Version None)
Quarter: 2008Q3

REPORT INFORMATION
  Report Type: 
  Country: None (occurrence: None)
  Receive Date: 20080926
  Receipt Date: 20080917
  Transmission Date: 20090109
  Serious: Yes (Hospitalization)
  Sender: FDA-Public Use
  Company Number: FR-BRISTOL-MYERS SQUIBB COMPANY-14231542

PATIENT
  Age: 14 Year
  Sex: Male
  Weight: 65 kg

DRUGS (10)
  1. ENDOXAN [Suspect]
     Indication: ACUTE LYMPHOCYTIC LEUKAEMIA
     Route: 042
     Dates: start: 20080510, end: 20080512
  2. GLEEVEC [Suspect]
     Indication: ACUTE LYMPHOCYTIC LEUKAEMIA
     Dosage: RESUMED ON 18AUG08.
     Route: 048
     Dates: start: 20080515, end: 20080518
  3. METHOTREXATE [Suspect]
     Indication: ACUTE LYMPHOCYTIC LEUKAEMIA
     Dosage: RESUMED ON 18AUG08.
     Route: 042
     Dates: start: 20080509, end: 20080509
  4. VINCRISTINE [Suspect]
     Indication: ACUTE LYMPHOCYTIC LEUKAEMIA
     Dosage: ALSO GIVEN ON 14-MAY-2008.
     Route: 042
     Dates: start: 20080509, end: 20080509
  5. ARACYTINE [Suspect]
     Indication: ACUTE LYMPHOCYTIC LEUKAEMIA
     Route: 065
     Dates: start: 20080509, end: 20080509
  6. BACTRIM [Suspect]
     Indication: ACUTE LYMPHOCYTIC LEUKAEMIA
     Dosage: RESUMED ON 18AUG08.
     Route: 048
     Dates: start: 20080515, end: 20080518
  7. DEXAMETHASONE [Concomitant]
     Dates: start: 20080501
  8. MESNA [Concomitant]
     Dates: start: 20080510, end: 20080512
  9. SOLU-MEDROL [Concomitant]
     Dates: start: 20080509, end: 20080509
  10. ASPARAGINASE [Concomitant]
     Dates: start: 20080513, end: 20080514

REACTIONS (8)
  - CYTOLYTIC HEPATITIS [None]
  - DYSPNOEA [None]
  - FEBRILE BONE MARROW APLASIA [None]
  - HYPERNATRAEMIA [None]
  - HYPERTENSION [None]
  - PARALYSIS [None]
  - RENAL FAILURE [None]
  - STEVENS-JOHNSON SYNDROME [None]
